FAERS Safety Report 7170857-2 (Version None)
Quarter: 2010Q4

REPORT INFORMATION
  Report Type: 
  Country: None (occurrence: None)
  Receive Date: 20101206
  Receipt Date: 20101118
  Transmission Date: 20110411
  Serious: Yes (Hospitalization)
  Sender: FDA-Public Use
  Company Number: OU-10-034-2

PATIENT
  Age: 79 Year
  Sex: Male
  Weight: 65 kg

DRUGS (2)
  1. CEFTRIAXON [Suspect]
     Indication: ANTI-INFECTIVE THERAPY
     Dosage: 2 G, ONCE DAILY, IV
     Route: 042
  2. IMIPENEM/CILASTATIN (NO PREF. NAME) [Suspect]
     Indication: ANTI-INFECTIVE THERAPY
     Dosage: 0.5 G, TWICE DAILY, IV
     Route: 042

REACTIONS (11)
  - ANXIETY [None]
  - BACILLUS TEST POSITIVE [None]
  - BLOOD PRESSURE INCREASED [None]
  - BODY TEMPERATURE INCREASED [None]
  - CANDIDA TEST POSITIVE [None]
  - CONDITION AGGRAVATED [None]
  - COUGH [None]
  - DELIRIUM [None]
  - INCREASED VISCOSITY OF BRONCHIAL SECRETION [None]
  - NERVOUSNESS [None]
  - RENAL IMPAIRMENT [None]
